FAERS Safety Report 23079877 (Version 1)
Quarter: 2023Q4

REPORT INFORMATION
  Report Type: Spontaneous
  Country: US (occurrence: US)
  Receive Date: 20231018
  Receipt Date: 20231018
  Transmission Date: 20240110
  Serious: No
  Sender: FDA-Public Use
  Company Number: US-La Jolla Pharmaceutical Company-2023TP000011

PATIENT
  Age: 57 Year
  Sex: Male

DRUGS (1)
  1. XERAVA [Suspect]
     Active Substance: ERAVACYCLINE DIHYDROCHLORIDE
     Indication: Stenotrophomonas infection
     Route: 042

REACTIONS (3)
  - Liver function test increased [Unknown]
  - Diarrhoea [Unknown]
  - Off label use [Unknown]
